FAERS Safety Report 24164909 (Version 2)
Quarter: 2024Q4

REPORT INFORMATION
  Report Type: Spontaneous
  Country: US (occurrence: US)
  Receive Date: 20240801
  Receipt Date: 20241011
  Transmission Date: 20250115
  Serious: No
  Sender: NOVARTIS
  Company Number: US-002147023-NVSC2024US153078

PATIENT
  Sex: Female

DRUGS (11)
  1. KESIMPTA [Suspect]
     Active Substance: OFATUMUMAB
     Indication: Product used for unknown indication
     Dosage: UNK UNK, Q4W, 20MG/0.4 ML INJECT 0.4 ML SQ
     Route: 065
  2. MONTELUKAST [Suspect]
     Active Substance: MONTELUKAST
     Indication: Product used for unknown indication
     Dosage: 10 MG, QD, HS
     Route: 048
  3. ALBUTEROL SULFATE [Suspect]
     Active Substance: ALBUTEROL SULFATE
     Indication: Asthma
     Dosage: 108 UG / ACT, 2 PUFFS Q4H PRN
     Route: 065
  4. ALBUTEROL [Suspect]
     Active Substance: ALBUTEROL
     Indication: Asthma
     Dosage: UNK,  NEBULIZER SOLUTION, 2.5MG/3ML (0.083%), 1 VIAL PER NEB Q4-6H PRN
     Route: 065
  5. CETIRIZINE [Suspect]
     Active Substance: CETIRIZINE HYDROCHLORIDE
     Indication: Hypersensitivity
     Dosage: 10 MG, PRN, QAM
     Route: 048
  6. NUVARING [Suspect]
     Active Substance: ETHINYL ESTRADIOL\ETONOGESTREL
     Dosage: UNK, Q4W, 0.12-0.015MG/24HR, 1 PV,  (3 WEEKS IN, 1 WEEK OUT)
     Route: 065
  7. CONCERTA [Suspect]
     Active Substance: METHYLPHENIDATE HYDROCHLORIDE
     Dosage: 54 MG, QAM
     Route: 048
  8. VENLAFAXINE HYDROCHLORIDE [Suspect]
     Active Substance: VENLAFAXINE HYDROCHLORIDE
     Indication: Hidradenitis
     Dosage: 75 MG, QD
     Route: 048
  9. LORAZEPAM [Suspect]
     Active Substance: LORAZEPAM
     Indication: Anxiety
     Dosage: 0.5 MG, PRN
     Route: 048
  10. RIZATRIPTAN [Suspect]
     Active Substance: RIZATRIPTAN
     Indication: Migraine
     Dosage: 10 MG, PRN, 1 SL
     Route: 065
  11. VITAMIN B12 [Suspect]
     Active Substance: CYANOCOBALAMIN
     Indication: Hidradenitis
     Dosage: 1000 UG, QD
     Route: 048

REACTIONS (1)
  - Product temperature excursion issue [Unknown]
